FAERS Safety Report 19002554 (Version 1)
Quarter: 2021Q1

REPORT INFORMATION
  Report Type: Spontaneous
  Country: US (occurrence: US)
  Receive Date: 20210312
  Receipt Date: 20210312
  Transmission Date: 20210420
  Serious: No
  Sender: FDA-Public Use
  Company Number: US-ALLERGAN-2038508US

PATIENT
  Sex: Female

DRUGS (1)
  1. ESTRADIOL VAGINAL CREAM USP 0.01% [Suspect]
     Active Substance: ESTRADIOL
     Indication: ATROPHIC VULVOVAGINITIS
     Dosage: UNK
     Route: 067
     Dates: start: 202009, end: 20200929

REACTIONS (8)
  - Adnexa uteri pain [Recovered/Resolved]
  - Product quality issue [Unknown]
  - Injury associated with device [Recovered/Resolved]
  - Product storage error [Unknown]
  - Headache [Recovered/Resolved]
  - Abdominal discomfort [Recovered/Resolved]
  - Bacterial infection [Recovered/Resolved]
  - Application site pain [Recovered/Resolved]
